FAERS Safety Report 9275951 (Version 3)
Quarter: 2014Q2

REPORT INFORMATION
  Report Type: Spontaneous
  Country: US (occurrence: US)
  Receive Date: 20130507
  Receipt Date: 20140430
  Transmission Date: 20141212
  Serious: No
  Sender: FDA-Public Use
  Company Number: US-009507513-1305USA001694

PATIENT
  Sex: Male

DRUGS (5)
  1. PROPECIA [Suspect]
     Indication: ALOPECIA
     Dosage: 1 MG, QD
     Route: 048
     Dates: start: 2009, end: 2010
  2. ROGAINE [Concomitant]
     Indication: ALOPECIA
  3. DESOWEN [Concomitant]
     Indication: ALOPECIA
  4. KENALOG [Concomitant]
     Indication: ALOPECIA
     Dosage: 40 MG, ONCE
     Route: 030
     Dates: start: 20100302
  5. VALISONE [Concomitant]
     Indication: ALOPECIA
     Dosage: UNK, BID

REACTIONS (4)
  - Cognitive disorder [Not Recovered/Not Resolved]
  - Sexual dysfunction [Not Recovered/Not Resolved]
  - Erectile dysfunction [Not Recovered/Not Resolved]
  - Depression [Unknown]
